FAERS Safety Report 12134772 (Version 2)
Quarter: 2016Q1

REPORT INFORMATION
  Report Type: Spontaneous
  Country: US (occurrence: US)
  Receive Date: 20160301
  Receipt Date: 20160311
  Transmission Date: 20160526
  Serious: Yes (Hospitalization)
  Sender: FDA-Public Use
  Company Number: US-BAUSCH-BL-2016-004730

PATIENT
  Age: 66 Year
  Sex: Female
  Weight: 43.58 kg

DRUGS (3)
  1. XENAZINE [Suspect]
     Active Substance: TETRABENAZINE
     Dosage: 1 AND ? TABLETS 3 TIMES DAILY
     Route: 048
  2. XENAZINE [Suspect]
     Active Substance: TETRABENAZINE
     Dosage: 25 MG AT MORNING + 25 MG IN LUNCH + 37.5 MG AT NIGHT
     Route: 048
     Dates: start: 20160224
  3. XENAZINE [Suspect]
     Active Substance: TETRABENAZINE
     Indication: HUNTINGTON^S DISEASE
     Route: 048
     Dates: start: 201408

REACTIONS (2)
  - Pneumonia aspiration [Unknown]
  - Overdose [Unknown]

NARRATIVE: CASE EVENT DATE: 20151230
